FAERS Safety Report 9383352 (Version 1)
Quarter: 2013Q3

REPORT INFORMATION
  Report Type: Spontaneous
  Country: JP (occurrence: JP)
  Receive Date: 20130704
  Receipt Date: 20130704
  Transmission Date: 20140515
  Serious: Yes (Other)
  Sender: FDA-Public Use
  Company Number: JP-009507513-1009USA00680

PATIENT
  Age: 78 Year
  Sex: Female
  Weight: 68 kg

DRUGS (6)
  1. JANUVIA TABLETS 50MG [Suspect]
     Indication: TYPE 2 DIABETES MELLITUS
     Dosage: 50 MG, QD
     Route: 048
     Dates: start: 20100805, end: 20100809
  2. ACTOS [Concomitant]
     Route: 048
     Dates: start: 2008, end: 20100730
  3. SEIBULE [Concomitant]
     Dosage: 150 MG, QD
     Route: 048
     Dates: end: 20100730
  4. GLUFAST [Concomitant]
     Dosage: 30 MG, QD
     Route: 048
     Dates: end: 20100730
  5. NOVORAPID [Concomitant]
     Dosage: 4 IU, TID
     Route: 058
     Dates: start: 20100730, end: 20100804
  6. LIVALO [Concomitant]
     Indication: DYSLIPIDAEMIA
     Dosage: 2 MG, QD
     Route: 048
     Dates: end: 20100730

REACTIONS (2)
  - Pyrexia [Recovered/Resolved]
  - Joint swelling [Recovered/Resolved]
